FAERS Safety Report 5211203-0 (Version None)
Quarter: 2006Q4

REPORT INFORMATION
  Report Type: 
  Country: None (occurrence: None)
  Receive Date: 20061114
  Receipt Date: 20060906
  Transmission Date: 20070319
  Serious: No
  Sender: FDA-Public Use
  Company Number: S06-USA-03617-01

PATIENT
  Age: 75 Year
  Sex: Male

DRUGS (9)
  1. NAMENDA [Suspect]
     Indication: DEMENTIA
     Dosage: 5 MG QD PO
     Route: 048
     Dates: start: 20060901
  2. TRAZODONE HCL [Concomitant]
  3. EFFEXOR [Concomitant]
  4. MECLIZINE [Concomitant]
  5. TRICOR [Concomitant]
  6. AVELOX [Concomitant]
  7. PROTONIX [Concomitant]
  8. FISH OIL [Concomitant]
  9. CENTRUM VITAMIN [Concomitant]

REACTIONS (3)
  - ASTHENIA [None]
  - CHEST PAIN [None]
  - SOMNOLENCE [None]
